FAERS Safety Report 8301167-5 (Version None)
Quarter: 2012Q2

REPORT INFORMATION
  Report Type: 
  Country: None (occurrence: None)
  Receive Date: 20120420
  Receipt Date: 20120413
  Transmission Date: 20120825
  Serious: Yes (Other)
  Sender: FDA-Public Use
  Company Number: PHHY2011CA73431

PATIENT
  Sex: Male

DRUGS (1)
  1. SANDOSTATIN [Suspect]
     Indication: ACROMEGALY
     Dosage: 50 UG, UNK
     Route: 058
     Dates: start: 20110808

REACTIONS (3)
  - APPLICATION SITE REACTION [None]
  - GALLBLADDER DISORDER [None]
  - BACK PAIN [None]
